FAERS Safety Report 6299485-8 (Version None)
Quarter: 2009Q3

REPORT INFORMATION
  Report Type: 
  Country: None (occurrence: None)
  Receive Date: 20090806
  Receipt Date: 20090729
  Transmission Date: 20100115
  Serious: Yes (Hospitalization)
  Sender: FDA-Public Use
  Company Number: B0586301A

PATIENT
  Sex: Female

DRUGS (6)
  1. ONDANSETRON HCL [Suspect]
     Dosage: 8MG CYCLIC
     Route: 042
     Dates: start: 20090623, end: 20090709
  2. ONDANSETRON HCL [Suspect]
     Dosage: 8MG CYCLIC
     Route: 048
     Dates: start: 20090701, end: 20090702
  3. FLECAINIDE ACETATE [Concomitant]
     Route: 065
  4. URSOLVAN [Concomitant]
     Route: 065
  5. OXALIPLATIN [Concomitant]
     Route: 065
     Dates: start: 20090601
  6. FLUOROURACIL [Concomitant]
     Route: 065
     Dates: start: 20090601

REACTIONS (4)
  - HYPERSENSITIVITY [None]
  - PRURIGO [None]
  - PYREXIA [None]
  - RASH MACULO-PAPULAR [None]
